FAERS Safety Report 17164651 (Version 1)
Quarter: 2019Q4

REPORT INFORMATION
  Report Type: Spontaneous
  Country: CN (occurrence: CN)
  Receive Date: 20191217
  Receipt Date: 20191217
  Transmission Date: 20200122
  Serious: Yes (Hospitalization)
  Sender: FDA-Public Use
  Company Number: CN-PFIZER INC-2019539707

PATIENT
  Age: 75 Year
  Sex: Male
  Weight: 60 kg

DRUGS (2)
  1. VFEND [Suspect]
     Active Substance: VORICONAZOLE
     Indication: RESPIRATORY FAILURE
     Dosage: 1.000 DF, 2X/DAY
     Route: 048
     Dates: start: 20191112, end: 20191114
  2. VFEND [Suspect]
     Active Substance: VORICONAZOLE
     Indication: CHRONIC OBSTRUCTIVE PULMONARY DISEASE

REACTIONS (8)
  - Vision blurred [Recovering/Resolving]
  - Vertigo [Recovering/Resolving]
  - Xanthopsia [Recovering/Resolving]
  - Halo vision [Recovering/Resolving]
  - Visual impairment [Recovering/Resolving]
  - Dizziness [Recovering/Resolving]
  - Chloropsia [Recovering/Resolving]
  - Insomnia [Recovering/Resolving]

NARRATIVE: CASE EVENT DATE: 20191114
